FAERS Safety Report 18753346 (Version 1)
Quarter: 2021Q1

REPORT INFORMATION
  Report Type: Report from Study
  Country: CA (occurrence: CA)
  Receive Date: 20210118
  Receipt Date: 20210118
  Transmission Date: 20210419
  Serious: Yes (Hospitalization)
  Sender: FDA-Public Use
  Company Number: CA-TAKEDA-CA202021994

PATIENT
  Age: 5 Year
  Sex: Male
  Weight: 34.4 kg

DRUGS (2)
  1. IDURSULFASE [Suspect]
     Active Substance: IDURSULFASE
     Dosage: 18 MILLIGRAM (3 FULL VIALS), 1X/WEEK
     Route: 065
     Dates: start: 20191213
  2. IDURSULFASE [Suspect]
     Active Substance: IDURSULFASE
     Indication: MUCOPOLYSACCHARIDOSIS II
     Dosage: 3 DOSAGE FORM, 1X/WEEK
     Route: 065
     Dates: start: 20191213

REACTIONS (9)
  - Poor venous access [Unknown]
  - Infusion site pain [Unknown]
  - Blood pressure increased [Unknown]
  - Infusion related reaction [Unknown]
  - Emotional distress [Recovered/Resolved]
  - Carpal tunnel syndrome [Recovering/Resolving]
  - Nervousness [Unknown]
  - Infusion site rash [Unknown]
  - Respiratory rate increased [Unknown]

NARRATIVE: CASE EVENT DATE: 20200626
